FAERS Safety Report 7060235-9 (Version None)
Quarter: 2010Q4

REPORT INFORMATION
  Report Type: 
  Country: None (occurrence: None)
  Receive Date: 20101025
  Receipt Date: 20101020
  Transmission Date: 20110411
  Serious: Yes (Hospitalization)
  Sender: FDA-Public Use
  Company Number: US-MERCK-1010USA00134

PATIENT
  Age: 45 Year
  Sex: Male

DRUGS (2)
  1. PRIMAXIN [Suspect]
     Indication: NEUTROPENIA
     Route: 042
     Dates: start: 20100925
  2. PRIMAXIN [Suspect]
     Indication: THROMBOCYTOPENIA
     Route: 042
     Dates: start: 20100925

REACTIONS (1)
  - URINE COLOUR ABNORMAL [None]
